FAERS Safety Report 18121762 (Version 3)
Quarter: 2020Q3

REPORT INFORMATION
  Report Type: Report from Study
  Country: US (occurrence: US)
  Receive Date: 20200806
  Receipt Date: 20200924
  Transmission Date: 20201103
  Serious: Yes (Hospitalization, Other)
  Sender: FDA-Public Use
  Company Number: NVSC2020US219121

PATIENT
  Sex: Female

DRUGS (2)
  1. TASIGNA [Suspect]
     Active Substance: NILOTINIB
     Indication: PRODUCT USED FOR UNKNOWN INDICATION
     Dosage: UNK
     Route: 048
  2. TASIGNA [Suspect]
     Active Substance: NILOTINIB
     Route: 048

REACTIONS (7)
  - Dyspnoea [Unknown]
  - Fatigue [Unknown]
  - Depressed mood [Unknown]
  - Temperature intolerance [Unknown]
  - Acute myeloid leukaemia [Unknown]
  - Constipation [Unknown]
  - Rhinorrhoea [Unknown]
